FAERS Safety Report 7253831-7 (Version None)
Quarter: 2011Q1

REPORT INFORMATION
  Report Type: 
  Country: None (occurrence: None)
  Receive Date: 20110129
  Receipt Date: 20100426
  Transmission Date: 20110831
  Serious: No
  Sender: FDA-Public Use
  Company Number: US-ABBOTT-10P-163-0640756-00

PATIENT
  Sex: Female
  Weight: 81.72 kg

DRUGS (6)
  1. DIABETIC MEDICATION [Concomitant]
     Indication: PRODUCT USED FOR UNKNOWN INDICATION
  2. HUMIRA [Suspect]
     Indication: RHEUMATOID ARTHRITIS
     Dates: start: 20090425
  3. MEDICATION FOR TUBERCULOSIS SINCE WAS EXPOSED [Concomitant]
     Indication: TUBERCULOSIS
     Dates: start: 20090401
  4. MEDICATION FOR TUBERCULOSIS SINCE WAS EXPOSED [Concomitant]
     Dates: start: 20090401
  5. METHOTREXATE [Concomitant]
     Indication: PRODUCT USED FOR UNKNOWN INDICATION
  6. ANTIHYPERTENSIVES [Concomitant]
     Indication: PRODUCT USED FOR UNKNOWN INDICATION

REACTIONS (4)
  - HYPOAESTHESIA [None]
  - PNEUMONIA [None]
  - OEDEMA PERIPHERAL [None]
  - DRUG DOSE OMISSION [None]
